FAERS Safety Report 16900306 (Version 1)
Quarter: 2019Q4

REPORT INFORMATION
  Report Type: Spontaneous
  Country: US (occurrence: US)
  Receive Date: 20190816
  Receipt Date: 20190816
  Transmission Date: 20200122
  Serious: Yes (Hospitalization)
  Sender: FDA-Public Use
  Company Number: None

PATIENT
  Age: 67 Year
  Sex: Male
  Weight: 95.4 kg

DRUGS (1)
  1. ERBITUX [Suspect]
     Active Substance: CETUXIMAB
     Dates: end: 20190805

REACTIONS (4)
  - Agitation [None]
  - Dehydration [None]
  - Mental status changes [None]
  - Incoherent [None]

NARRATIVE: CASE EVENT DATE: 20190805
